FAERS Safety Report 5622209-1 (Version None)
Quarter: 2008Q1

REPORT INFORMATION
  Report Type: 
  Country: None (occurrence: None)
  Receive Date: 20080211
  Receipt Date: 20080205
  Transmission Date: 20080703
  Serious: Yes (Hospitalization)
  Sender: FDA-Public Use
  Company Number: JP-ASTRAZENECA-2008AP00725

PATIENT
  Age: 70 Year
  Sex: Male
  Weight: 66 kg

DRUGS (12)
  1. IRESSA [Suspect]
     Indication: NON-SMALL CELL LUNG CANCER
     Route: 048
     Dates: start: 20071207, end: 20080123
  2. ASPIRIN [Concomitant]
     Indication: ANGINA PECTORIS
     Route: 048
     Dates: start: 20040812
  3. NOVORAPID [Concomitant]
     Dosage: DOSE: 5-10 UNITS
     Route: 058
     Dates: start: 20040915
  4. LIPITOR [Concomitant]
     Indication: HYPERLIPIDAEMIA
     Route: 048
     Dates: start: 20050202
  5. TANATRIL [Concomitant]
     Indication: HYPERTENSION
     Route: 048
     Dates: start: 20060614
  6. BISOLVON [Concomitant]
     Indication: BRONCHITIS CHRONIC
     Route: 048
     Dates: start: 20070725
  7. UNKNOWNDRUG [Concomitant]
     Indication: HYPERTENSION
     Route: 048
     Dates: start: 20070921
  8. AMLODIN OD [Concomitant]
     Indication: HYPERTENSION
     Route: 048
     Dates: start: 20071017
  9. VOLTAREN [Concomitant]
     Indication: BACK PAIN
     Route: 048
     Dates: start: 20071214
  10. GASTER D [Concomitant]
     Indication: PROPHYLAXIS AGAINST GASTROINTESTINAL ULCER
     Route: 048
     Dates: start: 20071214
  11. PRIMPERAN INJ [Concomitant]
     Indication: VOMITING
     Route: 048
     Dates: start: 20071217
  12. LECICARBON [Concomitant]
     Indication: CONSTIPATION
     Dosage: PRN
     Route: 054
     Dates: start: 20080116

REACTIONS (3)
  - CARDIAC FAILURE CONGESTIVE [None]
  - DIARRHOEA [None]
  - INTERSTITIAL LUNG DISEASE [None]
